FAERS Safety Report 4299640-2 (Version None)
Quarter: 2004Q1

REPORT INFORMATION
  Report Type: 
  Country: None (occurrence: None)
  Receive Date: 20040217
  Receipt Date: 20040217
  Transmission Date: 20041129
  Serious: Yes (Hospitalization)
  Sender: FDA-Public Use
  Company Number: None

PATIENT
  Age: 28 Year
  Sex: Male
  Weight: 84.1 kg

DRUGS (15)
  1. LOVENOX [Suspect]
  2. BISACODYL [Concomitant]
  3. DIAZEPAM [Concomitant]
  4. LOVENOX [Concomitant]
  5. HALOPERIDOL [Concomitant]
  6. LASIX [Concomitant]
  7. OXYCODONE HCL [Concomitant]
  8. INSULIN [Concomitant]
  9. LORAZEPAM [Concomitant]
  10. MINOCYCLINE HCL [Concomitant]
  11. MORPHINE [Concomitant]
  12. MULTI-VITAMIN [Concomitant]
  13. OXANDROLONE [Concomitant]
  14. RIFAMPIN [Concomitant]
  15. VIT B 12 [Concomitant]

REACTIONS (1)
  - HEPARIN-INDUCED THROMBOCYTOPENIA [None]
